FAERS Safety Report 25036643 (Version 2)
Quarter: 2025Q1

REPORT INFORMATION
  Report Type: Spontaneous
  Country: US (occurrence: US)
  Receive Date: 20250304
  Receipt Date: 20250319
  Transmission Date: 20250408
  Serious: Yes (Life-Threatening, Other)
  Sender: RANBAXY
  Company Number: US-SUN PHARMACEUTICAL INDUSTRIES LTD-2025R1-497044

PATIENT
  Age: 29 Year
  Sex: Female

DRUGS (1)
  1. BUPROPION [Suspect]
     Active Substance: BUPROPION
     Indication: Attention deficit hyperactivity disorder
     Dosage: 150 MILLIGRAM, OD
     Route: 065

REACTIONS (13)
  - Anaphylactic shock [Unknown]
  - Autoimmune disorder [Unknown]
  - Depression [Unknown]
  - Dizziness [Unknown]
  - Ear discomfort [Unknown]
  - Headache [Unknown]
  - Hypersensitivity [Unknown]
  - Hypoacusis [Unknown]
  - Neurological symptom [Unknown]
  - Product contamination [Unknown]
  - Rash [Unknown]
  - Throat tightness [Unknown]
  - Tinnitus [Unknown]
